FAERS Safety Report 9797449 (Version 1)
Quarter: 2014Q1

REPORT INFORMATION
  Report Type: Spontaneous
  Country: CA (occurrence: None)
  Receive Date: 20140102
  Receipt Date: 20140102
  Transmission Date: 20141002
  Serious: Yes (Other)
  Sender: FDA-Public Use
  Company Number: None

PATIENT
  Age: 54 Year
  Sex: Female
  Weight: 90.72 kg

DRUGS (1)
  1. LAMOTRIGINE [Suspect]
     Indication: BIPOLAR DISORDER
     Dosage: 4 PILLS  ONCE DAILY  TAKEN BY MOUTH
     Route: 048
     Dates: start: 20131224, end: 20140101

REACTIONS (6)
  - Depression [None]
  - Mania [None]
  - Product substitution issue [None]
  - Impaired driving ability [None]
  - Feeling abnormal [None]
  - Feeling abnormal [None]
